FAERS Safety Report 9136618 (Version 1)
Quarter: 2013Q1

REPORT INFORMATION
  Report Type: Spontaneous
  Country: US (occurrence: US)
  Receive Date: 20130304
  Receipt Date: 20130304
  Transmission Date: 20140127
  Serious: No
  Sender: FDA-Public Use
  Company Number: US-ABBOTT-13P-163-1046643-00

PATIENT
  Age: 11 Year
  Sex: Female

DRUGS (3)
  1. ANDROGEL [Suspect]
     Indication: PRODUCT USED FOR UNKNOWN INDICATION
     Dosage: EXPOSURE TO SURFACE AREAS TOUCHED BY FATHER
     Route: 062
  2. VERAMIST [Concomitant]
     Indication: ASTHMA
  3. XOPENEX [Concomitant]
     Indication: ASTHMA

REACTIONS (5)
  - Anger [Recovering/Resolving]
  - Accidental exposure to product [Not Recovered/Not Resolved]
  - Alopecia [Not Recovered/Not Resolved]
  - Insomnia [Recovering/Resolving]
  - Initial insomnia [Recovering/Resolving]
